APPROVED DRUG PRODUCT: LIVDELZI
Active Ingredient: SELADELPAR LYSINE
Strength: EQ 10MG BASE
Dosage Form/Route: CAPSULE;ORAL
Application: N217899 | Product #001
Applicant: GILEAD SCIENCES INC
Approved: Aug 14, 2024 | RLD: Yes | RS: Yes | Type: RX

PATENTS:
Patent 11596614 | Expires: Mar 19, 2035
Patent 11406611 | Expires: Mar 19, 2035
Patent 10272058 | Expires: Mar 19, 2035
Patent 9486428 | Expires: Mar 19, 2035
Patent 7709682 | Expires: Sep 13, 2026
Patent 7301050 | Expires: Aug 2, 2026

EXCLUSIVITY:
Code: NCE | Date: Aug 14, 2029
Code: ODE-486 | Date: Aug 14, 2031